FAERS Safety Report 4712941-6 (Version None)
Quarter: 2005Q3

REPORT INFORMATION
  Report Type: 
  Country: None (occurrence: None)
  Receive Date: 20050711
  Receipt Date: 20050707
  Transmission Date: 20060218
  Serious: Yes (Life-Threatening, Hospitalization)
  Sender: FDA-Public Use
  Company Number: A044-002-005660

PATIENT
  Age: 87 Year
  Sex: Female
  Weight: 55 kg

DRUGS (9)
  1. ARICEPT [Suspect]
     Indication: DEMENTIA ALZHEIMER'S TYPE
     Dosage: 10 MG, 1 IN 1 D, ORAL
     Route: 048
     Dates: start: 20041101, end: 20050622
  2. TRINITRINE PATCH (GLYCERYL TRINITRATE) [Concomitant]
  3. FUROSEMIDE 9FUROSEMIDE) [Concomitant]
  4. POTASSIUM CHLORATE (POTASSIUM CHLORATE) [Concomitant]
  5. CITALOPRAM (CITALOPRAM) [Concomitant]
  6. ALPRAZOLAM [Concomitant]
  7. DL LYSINE ACETYLSALICYLATE (ACETYLSALICYLATE LYSINE) [Concomitant]
  8. MOLSIDOMINE (MOLSIDOMINE) [Concomitant]
  9. ACETAMINOPHEN [Concomitant]

REACTIONS (5)
  - ATRIOVENTRICULAR BLOCK COMPLETE [None]
  - BUNDLE BRANCH BLOCK [None]
  - CARDIAC ARREST [None]
  - TORSADE DE POINTES [None]
  - VENTRICULAR TACHYCARDIA [None]
